FAERS Safety Report 6952414-3 (Version None)
Quarter: 2010Q3

REPORT INFORMATION
  Report Type: 
  Country: None (occurrence: None)
  Receive Date: 20100829
  Receipt Date: 20100504
  Transmission Date: 20110219
  Serious: No
  Sender: FDA-Public Use
  Company Number: US-ABBOTT-10P-163-0642407-00

PATIENT
  Sex: Female

DRUGS (3)
  1. NIASPAN [Suspect]
     Indication: DYSLIPIDAEMIA
     Dosage: 500MG AT BEDTIME
     Route: 048
     Dates: start: 20100426
  2. ASPIRIN [Concomitant]
     Indication: PRODUCT USED FOR UNKNOWN INDICATION
     Dosage: 81MG DAILY
     Route: 048
  3. CRESTOR [Concomitant]
     Indication: PRODUCT USED FOR UNKNOWN INDICATION
     Dosage: DOSE NOT REPORTED
     Route: 048

REACTIONS (3)
  - FEELING HOT [None]
  - FLUSHING [None]
  - PRURITUS [None]
